FAERS Safety Report 24629268 (Version 2)
Quarter: 2025Q3

REPORT INFORMATION
  Report Type: Spontaneous
  Country: GB (occurrence: GB)
  Receive Date: 20241118
  Receipt Date: 20250809
  Transmission Date: 20251020
  Serious: Yes (Other)
  Sender: ALEXION PHARMACEUTICALS
  Company Number: None

PATIENT
  Age: 43 Year
  Sex: Female
  Weight: 125 kg

DRUGS (2)
  1. DAPAGLIFLOZIN [Suspect]
     Active Substance: DAPAGLIFLOZIN
     Indication: Diabetes mellitus
     Dosage: 10 MILLIGRAM, QD
     Dates: start: 20241030, end: 20241105
  2. APIXABAN [Concomitant]
     Active Substance: APIXABAN
     Indication: Deep vein thrombosis

REACTIONS (2)
  - Renal pain [Recovered/Resolved]
  - Blood urine present [Recovered/Resolved]

NARRATIVE: CASE EVENT DATE: 20241030
